FAERS Safety Report 14244267 (Version 4)
Quarter: 2018Q4

REPORT INFORMATION
  Report Type: Spontaneous
  Country: US (occurrence: US)
  Receive Date: 20171201
  Receipt Date: 20181130
  Transmission Date: 20190204
  Serious: Yes (Other)
  Sender: FDA-Public Use
  Company Number: US-PFIZER INC-2015374512

PATIENT
  Age: 74 Year
  Sex: Female
  Weight: 107.5 kg

DRUGS (25)
  1. CATAPRES [Concomitant]
     Active Substance: CLONIDINE HYDROCHLORIDE
     Dosage: 0.1 MG, 2X/DAY
     Route: 048
  2. COZAAR [Concomitant]
     Active Substance: LOSARTAN POTASSIUM
     Indication: THYROID DISORDER
     Dosage: 100 MG, DAILY
     Route: 048
  3. VITAMIN E [Concomitant]
     Active Substance: .ALPHA.-TOCOPHEROL
     Dosage: 400 IU, DAILY
     Route: 048
  4. VITAMIN D3 [Concomitant]
     Active Substance: CHOLECALCIFEROL
     Dosage: 1000 IU, DAILY
     Route: 048
  5. LOFIBRA [Concomitant]
     Active Substance: FENOFIBRATE
     Dosage: 160 MG, DAILY
     Route: 048
  6. ARIMIDEX [Concomitant]
     Active Substance: ANASTROZOLE
     Dosage: UNK
     Dates: start: 201402
  7. TRIGLIDE [Concomitant]
     Active Substance: FENOFIBRATE
     Dosage: 160 MG, DAILY
     Route: 048
  8. ASPIRINE [Concomitant]
     Active Substance: ASPIRIN
     Dosage: 81 MG, DAILY
     Route: 048
  9. MYCOSTATIN [Concomitant]
     Active Substance: NYSTATIN
     Dosage: UNK, AS NEEDED
     Route: 061
  10. SYNTHROID [Concomitant]
     Active Substance: LEVOTHYROXINE SODIUM
     Indication: THYROID DISORDER
     Dosage: 50 UG, DAILY
     Route: 048
  11. AROMASIN [Suspect]
     Active Substance: EXEMESTANE
     Dosage: 25 MG, UNK
  12. FLONASE [Concomitant]
     Active Substance: FLUTICASONE PROPIONATE
     Dosage: 200 MG [2 PUFFS EACH SIDE NOSE DAILY FOR 10 DAYS]
     Route: 045
  13. NORCO [Concomitant]
     Active Substance: ACETAMINOPHEN\HYDROCODONE BITARTRATE
     Dosage: UNK [HYDROCODONE BITARTRATE 5 MG, PARACETAMOL 325 MG]
  14. AROMASIN [Suspect]
     Active Substance: EXEMESTANE
     Indication: BREAST CANCER FEMALE
     Dosage: 25 MG, DAILY
     Route: 048
     Dates: start: 20160819
  15. KLONOPIN [Concomitant]
     Active Substance: CLONAZEPAM
     Dosage: AS NEEDED [1 TABLET EVERY MORNING AND 2 TABLETS EVERY NIGHT AS NEEDED]
     Route: 048
  16. RELAFEN [Concomitant]
     Active Substance: NABUMETONE
     Dosage: 750 MG, UNK
  17. PRILOSEC [Concomitant]
     Active Substance: OMEPRAZOLE MAGNESIUM
     Dosage: 5 MG, UNK
  18. CELESTONE SOLUSPAN [Concomitant]
     Active Substance: BETAMETHASONE ACETATE\BETAMETHASONE SODIUM PHOSPHATE
     Dosage: 6 MG/ML
  19. AMOXIL [Concomitant]
     Active Substance: AMOXICILLIN
     Dosage: 2000 MG (4 CAP 30 MIN BEFORE DENTAL PROCEDURE)
  20. PRILOSEC [Concomitant]
     Active Substance: OMEPRAZOLE MAGNESIUM
     Dosage: 20 MG, DAILY
     Route: 048
  21. MENTHOL. [Concomitant]
     Active Substance: MENTHOL
     Dosage: UNK, AS NEEDED
     Route: 061
  22. NABUMETONE. [Concomitant]
     Active Substance: NABUMETONE
     Dosage: 750 MG, 2X/DAY
     Route: 048
  23. HYDRODIURIL [Concomitant]
     Active Substance: HYDROCHLOROTHIAZIDE
     Indication: BLOOD PRESSURE ABNORMAL
     Dosage: 25 MG, UNK
     Route: 048
  24. HYDRODIURIL [Concomitant]
     Active Substance: HYDROCHLOROTHIAZIDE
     Indication: FLUID IMBALANCE
  25. LEVOTHROID [Concomitant]
     Active Substance: LEVOTHYROXINE SODIUM
     Indication: THYROID DISORDER
     Dosage: 50 UG, DAILY
     Route: 048

REACTIONS (1)
  - Cataract [Unknown]

NARRATIVE: CASE EVENT DATE: 20171025
